FAERS Safety Report 6862154-7 (Version None)
Quarter: 2010Q3

REPORT INFORMATION
  Report Type: 
  Country: None (occurrence: None)
  Receive Date: 20100721
  Receipt Date: 20100714
  Transmission Date: 20110219
  Serious: Yes (Other)
  Sender: FDA-Public Use
  Company Number: US-WYE-H15575710

PATIENT
  Sex: Female
  Weight: 95.34 kg

DRUGS (4)
  1. EFFEXOR XR [Suspect]
     Indication: DEPRESSION
     Dosage: ^UNKNOWN DOSE FOR THE FIRST 6 WEEKS^
     Route: 048
     Dates: start: 20060101
  2. EFFEXOR XR [Suspect]
     Indication: ANXIETY
     Route: 048
     Dates: start: 20060101
  3. EFFEXOR XR [Suspect]
     Indication: BIPOLAR DISORDER
  4. LAMICTAL [Concomitant]
     Indication: BIPOLAR DISORDER
     Route: 048

REACTIONS (6)
  - BACK PAIN [None]
  - BENIGN BREAST NEOPLASM [None]
  - BREAST ENLARGEMENT [None]
  - DRUG EFFECT DECREASED [None]
  - DRUG INEFFECTIVE [None]
  - WEIGHT DECREASED [None]
